FAERS Safety Report 8286402-4 (Version None)
Quarter: 2012Q2

REPORT INFORMATION
  Report Type: 
  Country: None (occurrence: None)
  Receive Date: 20120416
  Receipt Date: 20120408
  Transmission Date: 20120825
  Serious: Yes (Hospitalization)
  Sender: FDA-Public Use
  Company Number: DE-US-EMD SERONO, INC.-7125131

PATIENT
  Sex: Female

DRUGS (4)
  1. VIVEO (TOLPERSION) [Concomitant]
     Indication: PRODUCT USED FOR UNKNOWN INDICATION
  2. REBIF [Suspect]
     Indication: MULTIPLE SCLEROSIS
     Route: 058
     Dates: start: 20120227
  3. REBIF [Suspect]
     Route: 058
     Dates: start: 20091101, end: 20120201
  4. LORAZEPAM [Concomitant]
     Indication: PRODUCT USED FOR UNKNOWN INDICATION

REACTIONS (3)
  - MOTOR DYSFUNCTION [None]
  - INJECTION SITE ERYTHEMA [None]
  - MUSCLE SPASMS [None]
